FAERS Safety Report 5346908-4 (Version None)
Quarter: 2007Q2

REPORT INFORMATION
  Report Type: 
  Country: None (occurrence: None)
  Receive Date: 20070501
  Receipt Date: 20060825
  Transmission Date: 20071010
  Serious: Yes (Hospitalization)
  Sender: FDA-Public Use
  Company Number: T200600734

PATIENT
  Age: 46 Year
  Sex: Female
  Weight: 78.5 kg

DRUGS (3)
  1. RESTORIL [Suspect]
     Indication: INSOMNIA
     Dosage: 30 MG, QD HS (HOUR OF SLEEP), ORAL
     Route: 048
     Dates: start: 20060622, end: 20060624
  2. ANTIPSYCHOTICS [Concomitant]
  3. TEGRETOL [Concomitant]

REACTIONS (1)
  - HALLUCINATION [None]
